FAERS Safety Report 16924887 (Version 1)
Quarter: 2019Q4

REPORT INFORMATION
  Report Type: Spontaneous
  Country: US (occurrence: US)
  Receive Date: 20190823
  Receipt Date: 20190823
  Transmission Date: 20200122
  Serious: Yes (Hospitalization)
  Sender: FDA-Public Use
  Company Number: None

PATIENT
  Age: 46 Year
  Sex: Female

DRUGS (10)
  1. PROAIR HFA [Concomitant]
     Active Substance: ALBUTEROL SULFATE
  2. XOPENEX [Concomitant]
     Active Substance: LEVALBUTEROL HYDROCHLORIDE
  3. OMEPRAZOLE. [Concomitant]
     Active Substance: OMEPRAZOLE
  4. BISOPROL [Concomitant]
     Active Substance: BISOPROLOL FUMARATE
  5. ENBREL [Suspect]
     Active Substance: ETANERCEPT
     Indication: RHEUMATOID ARTHRITIS
     Route: 058
     Dates: start: 20170712
  6. ATORVASTIN [Concomitant]
     Active Substance: ATORVASTATIN
  7. VICTOZA [Concomitant]
     Active Substance: LIRAGLUTIDE
  8. MONTELUKAST [Concomitant]
     Active Substance: MONTELUKAST SODIUM
  9. BACLOFEN. [Concomitant]
     Active Substance: BACLOFEN
  10. METFORMON [Concomitant]

REACTIONS (2)
  - Intervertebral disc protrusion [None]
  - Therapy cessation [None]

NARRATIVE: CASE EVENT DATE: 20190808
